FAERS Safety Report 7756332-2 (Version None)
Quarter: 2011Q3

REPORT INFORMATION
  Report Type: 
  Country: None (occurrence: None)
  Receive Date: 20110916
  Receipt Date: 20110906
  Transmission Date: 20111222
  Serious: Yes (Hospitalization)
  Sender: FDA-Public Use
  Company Number: RU-SANOFI-AVENTIS-2011SA044056

PATIENT
  Age: 77 Year
  Sex: Female
  Weight: 61 kg

DRUGS (6)
  1. ENALAPRIL MALEATE [Concomitant]
     Dates: start: 20110325
  2. METOPROLOL TARTRATE [Concomitant]
  3. METFORMIN HCL [Concomitant]
  4. DIGOXIN [Concomitant]
  5. THIAZIDES [Concomitant]
  6. DRONEDARONE HCL [Suspect]
     Indication: ATRIAL FIBRILLATION
     Route: 048
     Dates: start: 20110318

REACTIONS (1)
  - ANGINA UNSTABLE [None]
